FAERS Safety Report 24258224 (Version 1)
Quarter: 2024Q3

REPORT INFORMATION
  Report Type: Spontaneous
  Country: CN (occurrence: CN)
  Receive Date: 20240828
  Receipt Date: 20240828
  Transmission Date: 20241016
  Serious: Yes (Life-Threatening)
  Sender: BAYER
  Company Number: CN-BAYER-2024A122640

PATIENT
  Age: 61 Year
  Sex: Male
  Weight: 64 kg

DRUGS (3)
  1. ULTRAVIST [Suspect]
     Active Substance: IOPROMIDE
     Indication: Angiogram cerebral
     Dosage: 80 ML, ONCE
     Route: 042
     Dates: start: 20240726, end: 20240726
  2. ULTRAVIST [Suspect]
     Active Substance: IOPROMIDE
     Indication: Vertebrobasilar insufficiency
  3. ULTRAVIST [Suspect]
     Active Substance: IOPROMIDE
     Indication: Cerebral ischaemia

REACTIONS (7)
  - Contrast media allergy [Recovering/Resolving]
  - Confusional state [Recovering/Resolving]
  - Oropharyngeal discomfort [None]
  - Chest discomfort [None]
  - Somnolence [None]
  - Respiratory rate increased [None]
  - Blood pressure increased [None]

NARRATIVE: CASE EVENT DATE: 20240726
